FAERS Safety Report 5122151-9 (Version None)
Quarter: 2006Q4

REPORT INFORMATION
  Report Type: 
  Country: None (occurrence: None)
  Receive Date: 20061004
  Receipt Date: 20061004
  Transmission Date: 20070319
  Serious: Yes (Hospitalization)
  Sender: FDA-Public Use
  Company Number: None

PATIENT
  Age: 54 Year
  Sex: Male
  Weight: 49.6 kg

DRUGS (3)
  1. OXYCODONE HCL [Suspect]
     Indication: PAIN
     Dosage: 5MG ONCE PO
     Route: 048
  2. DIAZEPAM [Suspect]
     Indication: MUSCLE SPASTICITY
     Dosage: 10MG ONCE PO
     Route: 048
  3. DIAZEPAM [Suspect]
     Indication: SPINAL CORD INJURY
     Dosage: 10MG ONCE PO
     Route: 048

REACTIONS (11)
  - ALCOHOL USE [None]
  - ANXIETY [None]
  - CONJUNCTIVAL HAEMORRHAGE [None]
  - FALL [None]
  - HYPOTENSION [None]
  - MULTIPLE DRUG OVERDOSE [None]
  - PERIORBITAL HAEMATOMA [None]
  - SKIN DISORDER [None]
  - SLEEP DISORDER [None]
  - SOMNOLENCE [None]
  - URINARY TRACT INFECTION [None]
